FAERS Safety Report 15982282 (Version 1)
Quarter: 2019Q1

REPORT INFORMATION
  Report Type: Report from Study
  Country: DE (occurrence: DE)
  Receive Date: 20190219
  Receipt Date: 20190219
  Transmission Date: 20190418
  Serious: Yes (Death, Hospitalization)
  Sender: FDA-Public Use
  Company Number: DE-MYLANLABS-2019M1015700

PATIENT
  Sex: Female

DRUGS (9)
  1. TORASEMIDE [Suspect]
     Active Substance: TORSEMIDE
     Indication: CARDIAC FAILURE
     Dosage: 100 MILLIGRAM, QD
     Route: 048
     Dates: start: 20171214, end: 20180618
  2. ALDACTONE [Suspect]
     Active Substance: SPIRONOLACTONE
     Indication: OEDEMA
     Dosage: UNK
     Route: 048
     Dates: start: 201806
  3. ELIQUIS [Concomitant]
     Active Substance: APIXABAN
     Indication: ATRIAL FIBRILLATION
     Dosage: 5 MG, QD
     Route: 048
     Dates: start: 20180524
  4. PANTOPRAZOLE [Concomitant]
     Active Substance: PANTOPRAZOLE
     Indication: PRODUCT USED FOR UNKNOWN INDICATION
     Dosage: 40 MG, QD
     Route: 048
     Dates: start: 20180618
  5. TORASEMIDE [Suspect]
     Active Substance: TORSEMIDE
     Indication: OEDEMA
     Dosage: UNK
     Route: 048
     Dates: start: 201806
  6. ENTRESTO [Suspect]
     Active Substance: SACUBITRIL\VALSARTAN
     Indication: OEDEMA
  7. ALDACTONE [Suspect]
     Active Substance: SPIRONOLACTONE
     Indication: CARDIAC FAILURE
     Dosage: 1, UNK, QD
     Route: 048
     Dates: start: 20170321, end: 20180618
  8. METOPROLOL SUCC CT [Concomitant]
     Active Substance: METOPROLOL SUCCINATE
     Indication: CORONARY ARTERY DISEASE
     Dosage: 47.5 MG, QD
     Route: 048
     Dates: start: 20180618
  9. ENTRESTO [Suspect]
     Active Substance: SACUBITRIL\VALSARTAN
     Indication: CARDIAC FAILURE CHRONIC
     Dosage: 48/52 MG, QD
     Route: 048
     Dates: start: 20170321, end: 20180618

REACTIONS (8)
  - Multimorbidity [Fatal]
  - General physical health deterioration [Fatal]
  - Acute kidney injury [Fatal]
  - Urinary tract infection [Fatal]
  - Urosepsis [Fatal]
  - Inflammatory marker increased [Fatal]
  - Herpes virus infection [Fatal]
  - C-reactive protein increased [Fatal]

NARRATIVE: CASE EVENT DATE: 201806
